FAERS Safety Report 5031074-5 (Version None)
Quarter: 2006Q2

REPORT INFORMATION
  Report Type: 
  Country: None (occurrence: None)
  Receive Date: 20060619
  Receipt Date: 20060619
  Transmission Date: 20061013
  Serious: No
  Sender: FDA-Public Use
  Company Number: None

PATIENT
  Sex: Female

DRUGS (1)
  1. ORTHO EVERA TRANSDERMAL PATCH [Suspect]
     Indication: MIGRAINE
     Route: 062
     Dates: start: 20060401

REACTIONS (2)
  - ARTERIAL THROMBOSIS LIMB [None]
  - POST PROCEDURAL COMPLICATION [None]
